FAERS Safety Report 6882303-4 (Version None)
Quarter: 2010Q3

REPORT INFORMATION
  Report Type: 
  Country: None (occurrence: None)
  Receive Date: 20100729
  Receipt Date: 20090723
  Transmission Date: 20110219
  Serious: No
  Sender: FDA-Public Use
  Company Number: US-MYLANLABS-2009S1012062

PATIENT
  Age: 61 Year
  Sex: Female

DRUGS (10)
  1. LEVOTHYROXINE SODIUM [Suspect]
     Route: 048
     Dates: start: 20090413
  2. LEVOTHYROXINE SODIUM [Suspect]
     Route: 048
  3. LEVOTHYROXINE SODIUM [Suspect]
     Route: 048
     Dates: end: 20090613
  4. BYSTOLIC [Concomitant]
  5. LIPITOR [Concomitant]
  6. TRAZODONE [Concomitant]
  7. MULTI-VITAMIN [Concomitant]
  8. CALCIUM 600 + D [Concomitant]
  9. FISH OIL [Concomitant]
  10. GLUCOSAMINE + CHONDROITIN [Concomitant]

REACTIONS (4)
  - AGITATION [None]
  - IRRITABILITY [None]
  - MOOD ALTERED [None]
  - PALPITATIONS [None]
